FAERS Safety Report 4980394-9 (Version None)
Quarter: 2006Q2

REPORT INFORMATION
  Report Type: 
  Country: None (occurrence: None)
  Receive Date: 20060421
  Receipt Date: 20060421
  Transmission Date: 20061013
  Serious: Yes (Other)
  Sender: FDA-Public Use
  Company Number: None

PATIENT
  Age: 17 Year
  Sex: Male
  Weight: 65.7716 kg

DRUGS (2)
  1. ZORCAINE [Suspect]
     Indication: ANAESTHESIA
     Dates: start: 20060419, end: 20060419
  2. ZORCAINE [Concomitant]

REACTIONS (3)
  - PARAESTHESIA ORAL [None]
  - PHARMACEUTICAL PRODUCT COMPLAINT [None]
  - POST PROCEDURAL COMPLICATION [None]
